FAERS Safety Report 8010843-3 (Version None)
Quarter: 2011Q4

REPORT INFORMATION
  Report Type: 
  Country: None (occurrence: None)
  Receive Date: 20111228
  Receipt Date: 20111227
  Transmission Date: 20120403
  Serious: Yes (Death, Other)
  Sender: FDA-Public Use
  Company Number: JP-BAYER-2011-122046

PATIENT
  Age: 64 Year
  Sex: Male

DRUGS (11)
  1. OMEPRAZOLE [Concomitant]
  2. AMPICILLIN [Concomitant]
     Indication: PYREXIA
  3. ACETYLSALICYLIC ACID SRT [Suspect]
     Indication: THROMBOSIS PROPHYLAXIS
     Dosage: 100 MG, QD
     Route: 048
  4. HEPARIN SODIUM [Suspect]
     Indication: CORONARY ARTERIAL STENT INSERTION
     Dosage: CONTINUOUS INFUSION (DOSE NOS)
  5. SULBACTAM [Concomitant]
     Indication: PYREXIA
  6. TICLOPIDINE HCL [Suspect]
     Indication: THROMBOSIS PROPHYLAXIS
     Dosage: 200 MG, QD
     Route: 048
  7. NIFEKALANT [Concomitant]
     Indication: VENTRICULAR FIBRILLATION
     Route: 042
  8. HEPARIN SODIUM [Suspect]
     Indication: CORONARY ARTERY THROMBOSIS
     Dosage: 10000 U, ONCE (BOLUS)
  9. ACETYLSALICYLIC ACID SRT [Suspect]
     Indication: CORONARY ARTERIAL STENT INSERTION
  10. TICLOPIDINE HCL [Suspect]
     Indication: CORONARY ARTERIAL STENT INSERTION
  11. DOPAMINE HCL [Concomitant]

REACTIONS (2)
  - PULMONARY ALVEOLAR HAEMORRHAGE [None]
  - PLATELET COUNT DECREASED [None]
